FAERS Safety Report 7743416-8 (Version None)
Quarter: 2011Q3

REPORT INFORMATION
  Report Type: 
  Country: None (occurrence: None)
  Receive Date: 20110912
  Receipt Date: 20110907
  Transmission Date: 20111222
  Serious: Yes (Death, Disabling)
  Sender: FDA-Public Use
  Company Number: PHHY2009IT57981

PATIENT
  Sex: Female

DRUGS (7)
  1. ZOMETA [Suspect]
     Dosage: 4 MG, QMO
     Route: 065
  2. LASIX [Concomitant]
     Dosage: UNK UKN, UNK
     Route: 065
  3. ZYLORIC ^FRESENIUS^ [Concomitant]
     Dosage: UNK UKN, UNK
     Route: 065
  4. GLYBURIDE [Concomitant]
     Dosage: UNK UKN, UNK
     Route: 065
  5. LANOXIN [Concomitant]
     Dosage: UNK UKN, UNK
     Route: 065
  6. LUVION [Concomitant]
     Dosage: UNK UKN, UNK
     Route: 065
  7. XANAX [Concomitant]
     Dosage: UNK UKN, UNK
     Route: 065

REACTIONS (2)
  - DEATH [None]
  - OSTEONECROSIS OF JAW [None]
